FAERS Safety Report 10018743 (Version 1)
Quarter: 2014Q1

REPORT INFORMATION
  Report Type: Spontaneous
  Country: US (occurrence: None)
  Receive Date: 20140314
  Receipt Date: 20140314
  Transmission Date: 20141002
  Serious: Yes (Disabling, Other)
  Sender: FDA-Public Use
  Company Number: None

PATIENT
  Age: 62 Year
  Sex: Female

DRUGS (8)
  1. DICYCLOMINE [Suspect]
     Indication: DIARRHOEA
     Route: 048
  2. SPIRONOLACTONE [Concomitant]
  3. BUPROPION [Concomitant]
  4. AMLODIPINE [Concomitant]
  5. HALDOL [Concomitant]
  6. TEMAZEPAM [Concomitant]
  7. LOW DOSE ASPIRIN [Concomitant]
  8. NUTRITIONAL SUPPLEMENTS [Concomitant]

REACTIONS (4)
  - Nightmare [None]
  - Erectile dysfunction [None]
  - Weight increased [None]
  - Anhedonia [None]
